FAERS Safety Report 8339758 (Version 6)
Quarter: 2017Q4

REPORT INFORMATION
  Report Type: Spontaneous
  Country: US (occurrence: US)
  Receive Date: 20120117
  Receipt Date: 20171030
  Transmission Date: 20180321
  Serious: Yes (Hospitalization, Other)
  Sender: FDA-Public Use
  Company Number: US-009507513-1201USA01727

PATIENT
  Sex: Female
  Weight: 99.77 kg

DRUGS (20)
  1. FOSAMAX [Suspect]
     Active Substance: ALENDRONATE SODIUM
     Indication: OSTEOPOROSIS
  2. ALENDRONATE SODIUM. [Suspect]
     Active Substance: ALENDRONATE SODIUM
     Indication: OSTEOPOROSIS PROPHYLAXIS
  3. FOSAMAX [Suspect]
     Active Substance: ALENDRONATE SODIUM
     Indication: OSTEOPENIA
     Dosage: 10 MG, UNK
     Route: 048
     Dates: start: 19991206
  4. FOSAMAX [Suspect]
     Active Substance: ALENDRONATE SODIUM
     Indication: OSTEOPOROSIS
  5. FOSAMAX [Suspect]
     Active Substance: ALENDRONATE SODIUM
     Indication: OSTEOPOROSIS
  6. OSCAL [Concomitant]
     Active Substance: CALCIUM CARBONATE
     Dosage: UNK
     Dates: start: 2002
  7. CALTRATE [Concomitant]
     Active Substance: CALCIUM CARBONATE
     Dosage: 600 MG, BID
     Dates: start: 19991202
  8. EVISTA [Concomitant]
     Active Substance: RALOXIFENE HYDROCHLORIDE
     Dosage: 60 MG, UNK
  9. FOSAMAX [Suspect]
     Active Substance: ALENDRONATE SODIUM
     Indication: OSTEOPENIA
     Dosage: 70 MG, QW
     Route: 048
     Dates: start: 200803, end: 201009
  10. ALENDRONATE SODIUM. [Suspect]
     Active Substance: ALENDRONATE SODIUM
     Indication: OSTEOPOROSIS
  11. FOSAMAX [Suspect]
     Active Substance: ALENDRONATE SODIUM
     Indication: OSTEOPOROSIS PROPHYLAXIS
  12. VITAMIN D [Concomitant]
     Active Substance: CHOLECALCIFEROL
     Dosage: UNK
     Dates: start: 2003
  13. FOSAMAX [Suspect]
     Active Substance: ALENDRONATE SODIUM
     Indication: OSTEOPOROSIS PROPHYLAXIS
  14. FOSAMAX [Suspect]
     Active Substance: ALENDRONATE SODIUM
     Indication: OSTEOPOROSIS PROPHYLAXIS
  15. ALENDRONATE SODIUM. [Suspect]
     Active Substance: ALENDRONATE SODIUM
     Indication: OSTEOPENIA
     Dosage: 70 MG, QW
     Route: 048
     Dates: start: 200912, end: 201012
  16. ALENDRONATE SODIUM. [Suspect]
     Active Substance: ALENDRONATE SODIUM
     Indication: OSTEOPOROSIS PROPHYLAXIS
  17. VITAMINS (UNSPECIFIED) [Concomitant]
     Active Substance: VITAMINS
     Dosage: 1 DF, QD
     Dates: start: 2002
  18. FOSAMAX [Suspect]
     Active Substance: ALENDRONATE SODIUM
     Indication: OSTEOPENIA
     Dosage: 70 MG, QW
     Route: 048
     Dates: start: 2007, end: 200802
  19. ALENDRONATE SODIUM. [Suspect]
     Active Substance: ALENDRONATE SODIUM
     Indication: OSTEOPENIA
     Dosage: 70 MG, QW
     Route: 048
     Dates: start: 200810, end: 200912
  20. ALENDRONATE SODIUM. [Suspect]
     Active Substance: ALENDRONATE SODIUM
     Indication: OSTEOPOROSIS

REACTIONS (32)
  - Coronary artery disease [Unknown]
  - Low turnover osteopathy [Unknown]
  - Hypertension [Unknown]
  - Female sterilisation [Unknown]
  - Irritable bowel syndrome [Unknown]
  - Hypothyroidism [Unknown]
  - Cataract [Unknown]
  - Asthma [Unknown]
  - Morton^s neuralgia [Unknown]
  - Breast disorder [Unknown]
  - Tendonitis [Recovering/Resolving]
  - Supraventricular tachycardia [Unknown]
  - Cartilage injury [Unknown]
  - Hyperlipidaemia [Unknown]
  - Back pain [Unknown]
  - Femur fracture [Unknown]
  - Stress fracture [Unknown]
  - Blood cholesterol increased [Unknown]
  - Hypertension [Unknown]
  - Bursitis [Unknown]
  - Asthma [Unknown]
  - Pulmonary artery aneurysm [Unknown]
  - Gastrooesophageal reflux disease [Unknown]
  - Tooth extraction [Unknown]
  - Basedow^s disease [Unknown]
  - Pulmonary embolism [Recovered/Resolved]
  - Hand fracture [Recovered/Resolved]
  - Electrocardiogram change [Unknown]
  - Dyslipidaemia [Unknown]
  - Gout [Unknown]
  - Arthritis [Unknown]
  - Rib fracture [Unknown]

NARRATIVE: CASE EVENT DATE: 2000
